FAERS Safety Report 25267197 (Version 5)
Quarter: 2025Q3

REPORT INFORMATION
  Report Type: Report from Study
  Country: CA (occurrence: CA)
  Receive Date: 20250505
  Receipt Date: 20250828
  Transmission Date: 20251020
  Serious: Yes (Hospitalization, Other)
  Sender: TAKEDA
  Company Number: CA-TAKEDA-2024TUS080746

PATIENT
  Age: 52 Year
  Sex: Female

DRUGS (17)
  1. VEDOLIZUMAB [Suspect]
     Active Substance: VEDOLIZUMAB
     Indication: Crohn^s disease
  2. VEDOLIZUMAB [Suspect]
     Active Substance: VEDOLIZUMAB
  3. VEDOLIZUMAB [Suspect]
     Active Substance: VEDOLIZUMAB
  4. FUROSEMIDE [Concomitant]
     Active Substance: FUROSEMIDE
  5. HYDROCHLOROTHIAZIDE [Concomitant]
     Active Substance: HYDROCHLOROTHIAZIDE
  6. CANDESARTAN [Concomitant]
     Active Substance: CANDESARTAN
  7. CANDESARTAN [Concomitant]
     Active Substance: CANDESARTAN
  8. NASONEX [Concomitant]
     Active Substance: MOMETASONE FUROATE
     Route: 061
  9. GLUCOSAMINE [Concomitant]
     Active Substance: GLUCOSAMINE
  10. Mar methimazole [Concomitant]
  11. ACETAMINOPHEN [Concomitant]
     Active Substance: ACETAMINOPHEN
  12. MOMETASONE [Concomitant]
     Active Substance: MOMETASONE
  13. ZOPICLONE [Concomitant]
     Active Substance: ZOPICLONE
  14. TYLENOL [Concomitant]
     Active Substance: ACETAMINOPHEN
  15. FLOVENT [Concomitant]
     Active Substance: FLUTICASONE PROPIONATE
  16. PURINETHOL [Concomitant]
     Active Substance: MERCAPTOPURINE
  17. SYNTHROID [Concomitant]
     Active Substance: LEVOTHYROXINE SODIUM

REACTIONS (2)
  - Thyroid cancer [Recovered/Resolved]
  - Lymphoma [Unknown]

NARRATIVE: CASE EVENT DATE: 20240725
